FAERS Safety Report 6795070-X (Version None)
Quarter: 2010Q2

REPORT INFORMATION
  Report Type: 
  Country: None (occurrence: None)
  Receive Date: 20100625
  Receipt Date: 20100616
  Transmission Date: 20101027
  Serious: Yes (Hospitalization)
  Sender: FDA-Public Use
  Company Number: ES-ROCHE-685630

PATIENT
  Sex: Female
  Weight: 71 kg

DRUGS (3)
  1. CAPECITABINE [Suspect]
     Indication: BREAST CANCER
     Dosage: LAST DOSE PRIOR TO SAE:08 FEBRUARY 2010, PERMANENTLY DISCONTINUED
     Route: 048
     Dates: start: 20100126, end: 20100305
  2. POLARAMINE [Concomitant]
     Dates: start: 20100208, end: 20100211
  3. CLARAL [Concomitant]
     Dosage: TDD: 2 GR
     Dates: start: 20100208, end: 20100225

REACTIONS (4)
  - DIARRHOEA [None]
  - FEBRILE NEUTROPENIA [None]
  - MUCOSAL INFLAMMATION [None]
  - THROMBOCYTOPENIA [None]
